FAERS Safety Report 6550041-3 (Version None)
Quarter: 2010Q1

REPORT INFORMATION
  Report Type: 
  Country: None (occurrence: None)
  Receive Date: 20100125
  Receipt Date: 20100113
  Transmission Date: 20100710
  Serious: No
  Sender: FDA-Public Use
  Company Number: US-JNJFOC-20100105175

PATIENT
  Sex: Female
  Weight: 54.43 kg

DRUGS (3)
  1. SANDOZ FENTANYL TRANSDERMAL SYSTEM [Suspect]
     Indication: BACK PAIN
     Dosage: NDC#: 0781-7113-55
     Route: 062
  2. CYMBALTA [Concomitant]
     Indication: DEPRESSION
     Route: 048
  3. SOMA [Concomitant]
     Indication: MUSCLE RELAXANT THERAPY
     Route: 048

REACTIONS (1)
  - DRUG ADMINISTERED AT INAPPROPRIATE SITE [None]
